FAERS Safety Report 8076757-8 (Version None)
Quarter: 2011Q4

REPORT INFORMATION
  Report Type: 
  Country: None (occurrence: None)
  Receive Date: 20111221
  Receipt Date: 20110412
  Transmission Date: 20120403
  Serious: Yes (Death, Hospitalization)
  Sender: FDA-Public Use
  Company Number: PHHY2011US14351

PATIENT
  Age: 74 Year
  Sex: Male
  Weight: 135.6 kg

DRUGS (7)
  1. PLAQUENIL [Concomitant]
  2. ATENOLOL [Concomitant]
  3. TRIAMTERENE AND HYDROCHLOROTHIAZID (HYDROCHLOROTHIAZIDE, TRIAMTERENE) [Concomitant]
  4. EXJADE [Suspect]
     Indication: MYELODYSPLASTIC SYNDROME
     Dosage: 500 MG, BID, ORAL
     Route: 048
     Dates: start: 20110113
  5. SULFASALAZINE [Concomitant]
  6. LASIX [Concomitant]
  7. LOVASTATIN [Concomitant]

REACTIONS (2)
  - NEOPLASM MALIGNANT [None]
  - ACUTE MYELOID LEUKAEMIA [None]
